FAERS Safety Report 5293500-6 (Version None)
Quarter: 2007Q2

REPORT INFORMATION
  Report Type: 
  Country: None (occurrence: None)
  Receive Date: 20070411
  Receipt Date: 20070405
  Transmission Date: 20071010
  Serious: Yes (Hospitalization)
  Sender: FDA-Public Use
  Company Number: US-GLAXOSMITHKLINE-A0646081A

PATIENT
  Age: 78 Year
  Sex: Female

DRUGS (15)
  1. WELLBUTRIN XL [Suspect]
     Indication: DEPRESSION
     Dosage: 150MG PER DAY
     Route: 048
     Dates: start: 20070320, end: 20070327
  2. LOVASTATIN [Concomitant]
  3. PREDNISONE TAB [Concomitant]
  4. NEXIUM [Concomitant]
  5. PAXIL [Concomitant]
  6. POTASSIUM CHLORIDE [Concomitant]
  7. COMPAZINE [Concomitant]
  8. TRAMADOL HCL [Concomitant]
  9. NEURONTIN [Concomitant]
  10. SYNTHROID [Concomitant]
  11. TYLENOL [Concomitant]
  12. PRIMIDONE [Concomitant]
  13. ALPHAGAN [Concomitant]
  14. UNSPECIFIED MEDICATION [Concomitant]
  15. AZOPT [Concomitant]

REACTIONS (3)
  - HYPOAESTHESIA [None]
  - MONOPLEGIA [None]
  - RASH [None]
